FAERS Safety Report 7800987-0 (Version None)
Quarter: 2011Q4

REPORT INFORMATION
  Report Type: 
  Country: None (occurrence: None)
  Receive Date: 20111007
  Receipt Date: 20111003
  Transmission Date: 20120403
  Serious: Yes (Hospitalization)
  Sender: FDA-Public Use
  Company Number: US-BIOGENIDEC-2011BI036987

PATIENT
  Age: 33 Year
  Sex: Female
  Weight: 68 kg

DRUGS (8)
  1. TREXIMET [Concomitant]
     Indication: MIGRAINE
  2. LYBREL [Concomitant]
     Indication: OBSESSIVE-COMPULSIVE DISORDER
  3. CYMBALTA [Concomitant]
     Indication: ANXIETY
  4. PAMELOR [Concomitant]
     Indication: HEADACHE
  5. TYSABRI [Suspect]
     Indication: MULTIPLE SCLEROSIS
     Route: 042
     Dates: start: 20080524
  6. XANAX [Concomitant]
     Indication: ANXIETY
  7. ADDERALL 5 [Concomitant]
     Indication: FATIGUE
  8. EXCEDRIN (MIGRAINE) [Concomitant]
     Indication: MIGRAINE

REACTIONS (1)
  - TONSILLITIS [None]
